FAERS Safety Report 23222213 (Version 2)
Quarter: 2023Q4

REPORT INFORMATION
  Report Type: Spontaneous
  Country: US (occurrence: US)
  Receive Date: 20231123
  Receipt Date: 20231212
  Transmission Date: 20240110
  Serious: No
  Sender: FDA-Public Use
  Company Number: US-009507513-2311USA005865

PATIENT
  Sex: Female

DRUGS (5)
  1. KEYTRUDA [Suspect]
     Active Substance: PEMBROLIZUMAB
     Indication: Endometrial cancer
     Dosage: 200 MILLIGRAM, EVERY 21 DAYS
     Route: 042
     Dates: start: 20231108
  2. KEYTRUDA [Suspect]
     Active Substance: PEMBROLIZUMAB
     Dosage: 200 MILLIGRAM, Q3W
     Dates: start: 20231129
  3. CARBOPLATIN [Suspect]
     Active Substance: CARBOPLATIN
     Indication: Endometrial cancer
     Dosage: UNK
     Dates: end: 202111
  4. PACLITAXEL [Suspect]
     Active Substance: PACLITAXEL
     Indication: Endometrial cancer
     Dosage: UNK
     Dates: end: 202111
  5. ELIQUIS [Suspect]
     Active Substance: APIXABAN
     Indication: Deep vein thrombosis

REACTIONS (3)
  - Haematuria [Recovered/Resolved]
  - Urticaria [Recovering/Resolving]
  - Urticaria [Recovering/Resolving]

NARRATIVE: CASE EVENT DATE: 20230101
